FAERS Safety Report 8013078-3 (Version None)
Quarter: 2011Q4

REPORT INFORMATION
  Report Type: 
  Country: None (occurrence: None)
  Receive Date: 20111229
  Receipt Date: 20111226
  Transmission Date: 20120403
  Serious: Yes (Death, Hospitalization)
  Sender: FDA-Public Use
  Company Number: BR-BIOMARINP-002147

PATIENT
  Sex: Male
  Weight: 26 kg

DRUGS (2)
  1. NAGLAZYME [Suspect]
     Indication: MUCOPOLYSACCHARIDOSIS VI
     Route: 042
     Dates: start: 20080416
  2. UNSPECIFIED CORTICOIDS [Concomitant]

REACTIONS (6)
  - DYSPNOEA [None]
  - NASOPHARYNGITIS [None]
  - TACHYCARDIA [None]
  - HYPERTENSION [None]
  - OXYGEN SATURATION DECREASED [None]
  - CARDIOPULMONARY FAILURE [None]
